FAERS Safety Report 23684604 (Version 1)
Quarter: 2024Q1

REPORT INFORMATION
  Report Type: Spontaneous
  Country: US (occurrence: US)
  Receive Date: 20240328
  Receipt Date: 20240328
  Transmission Date: 20240409
  Serious: No
  Sender: FDA-Public Use
  Company Number: US-Evolus, Inc.-2023EV000080

PATIENT
  Age: 40 Year
  Sex: Male

DRUGS (3)
  1. JEUVEAU [Suspect]
     Active Substance: PRABOTULINUMTOXINA-XVFS
     Indication: Skin wrinkling
     Dosage: GLABELLA 20 UNITS, FOREHEAD 12 UNITS AND CROWS FEET 12 UNITS BILATERALLY
     Dates: start: 20230316, end: 20230316
  2. JEUVEAU [Suspect]
     Active Substance: PRABOTULINUMTOXINA-XVFS
     Indication: Skin wrinkling
  3. JEUVEAU [Suspect]
     Active Substance: PRABOTULINUMTOXINA-XVFS
     Indication: Product used for unknown indication

REACTIONS (4)
  - Injection site papule [Unknown]
  - Injection site pruritus [Unknown]
  - Injection site bruising [Unknown]
  - Off label use [Unknown]

NARRATIVE: CASE EVENT DATE: 20230316
